FAERS Safety Report 8879592 (Version 1)
Quarter: 2012Q4

REPORT INFORMATION
  Report Type: 
  Country: DE (occurrence: DE)
  Receive Date: 20121101
  Receipt Date: 20121101
  Transmission Date: 20130627
  Serious: Yes (Other)
  Sender: FDA-Public Use
  Company Number: DE-UCBSA-069896

PATIENT
  Sex: Male

DRUGS (8)
  1. KEPPRA [Suspect]
  2. HALOPERIDOL [Suspect]
     Dosage: STARTED 37 YEARS AGO
  3. HALOPERIDOL [Suspect]
     Dosage: DOSE DOWN-TITRATED
  4. TAVOR [Suspect]
  5. RISPERIDONE [Suspect]
  6. SEROQUEL [Suspect]
  7. VENLAFAXIN [Suspect]
  8. MICTONORM [Suspect]

REACTIONS (13)
  - Diabetes mellitus [Unknown]
  - Neuroleptic malignant syndrome [Unknown]
  - Parkinson^s disease [Unknown]
  - Multiple sclerosis [Unknown]
  - Dysstasia [Unknown]
  - Unresponsive to stimuli [Unknown]
  - Schizophrenia [Unknown]
  - Stupor [Unknown]
  - Malaise [Unknown]
  - Incontinence [Unknown]
  - Oedema peripheral [Unknown]
  - Restlessness [Unknown]
  - Aggression [Unknown]
